FAERS Safety Report 10878907 (Version 1)
Quarter: 2015Q1

REPORT INFORMATION
  Report Type: Spontaneous
  Country: US (occurrence: None)
  Receive Date: 20150225
  Receipt Date: 20150225
  Transmission Date: 20150721
  Serious: Yes (Hospitalization, Other)
  Sender: FDA-Public Use
  Company Number: 2015-10714

PATIENT
  Age: 81 Year
  Sex: Female

DRUGS (1)
  1. EYLEA [Suspect]
     Active Substance: AFLIBERCEPT
     Indication: MACULAR DEGENERATION
     Dosage: UNK, MONTHLY, OS
     Dates: start: 2014

REACTIONS (4)
  - Fall [None]
  - Drug dose omission [None]
  - Patella fracture [None]
  - Hip fracture [None]

NARRATIVE: CASE EVENT DATE: 201409
